FAERS Safety Report 24995701 (Version 3)
Quarter: 2025Q4

REPORT INFORMATION
  Report Type: Report from Study
  Country: US (occurrence: US)
  Receive Date: 20250221
  Receipt Date: 20251017
  Transmission Date: 20260118
  Serious: Yes (Other)
  Sender: ROCHE
  Company Number: US-ROCHE-10000211712

PATIENT
  Age: 61 Year
  Sex: Male

DRUGS (22)
  1. OCREVUS [Suspect]
     Active Substance: OCRELIZUMAB
     Indication: Relapsing multiple sclerosis
     Route: 065
     Dates: start: 202212
  2. BUPROPION [Concomitant]
     Active Substance: BUPROPION
     Route: 048
  3. BUPROPION [Concomitant]
     Active Substance: BUPROPION
     Route: 048
  4. ESCITALOPRAM OXALATE [Concomitant]
     Active Substance: ESCITALOPRAM OXALATE
     Route: 048
  5. ESCITALOPRAM OXALATE [Concomitant]
     Active Substance: ESCITALOPRAM OXALATE
     Route: 048
  6. OXCARBAZEPINE [Concomitant]
     Active Substance: OXCARBAZEPINE
     Route: 048
  7. OXCARBAZEPINE [Concomitant]
     Active Substance: OXCARBAZEPINE
     Route: 048
  8. ROSUVASTATIN [Concomitant]
     Active Substance: ROSUVASTATIN
     Route: 048
  9. ROSUVASTATIN [Concomitant]
     Active Substance: ROSUVASTATIN
     Route: 048
  10. SODIUM CHLORIDE [Concomitant]
     Active Substance: SODIUM CHLORIDE
     Route: 048
  11. SODIUM CHLORIDE [Concomitant]
     Active Substance: SODIUM CHLORIDE
     Route: 048
  12. TIRZEPATIDE [Concomitant]
     Active Substance: TIRZEPATIDE
     Route: 058
  13. TIRZEPATIDE [Concomitant]
     Active Substance: TIRZEPATIDE
     Route: 058
  14. TRAZODONE [Concomitant]
     Active Substance: TRAZODONE HYDROCHLORIDE
     Route: 048
  15. TRAZODONE [Concomitant]
     Active Substance: TRAZODONE HYDROCHLORIDE
     Route: 048
  16. ASPIRIN [Concomitant]
     Active Substance: ASPIRIN
     Route: 048
  17. ASPIRIN [Concomitant]
     Active Substance: ASPIRIN
     Route: 048
  18. VITAMIN B COMPLEX [Concomitant]
     Active Substance: CYANOCOBALAMIN\DEXPANTHENOL\NIACINAMIDE\PYRIDOXINE HYDROCHLORIDE\RIBOFLAVIN 5^-PHOSPHATE SODIUM\THIA
     Route: 048
  19. VITAMIN B COMPLEX [Concomitant]
     Active Substance: CYANOCOBALAMIN\DEXPANTHENOL\NIACINAMIDE\PYRIDOXINE HYDROCHLORIDE\RIBOFLAVIN 5^-PHOSPHATE SODIUM\THIA
     Route: 048
  20. ERGOCALCIFEROL [Concomitant]
     Active Substance: ERGOCALCIFEROL
     Route: 048
  21. ERGOCALCIFEROL [Concomitant]
     Active Substance: ERGOCALCIFEROL
     Route: 048
  22. GABAPENTIN [Concomitant]
     Active Substance: GABAPENTIN

REACTIONS (29)
  - Platelet count decreased [Unknown]
  - Mean platelet volume increased [Unknown]
  - Blood glucose increased [Unknown]
  - Globulins decreased [Unknown]
  - Albumin globulin ratio increased [Unknown]
  - Alanine aminotransferase increased [Unknown]
  - Vitamin B12 increased [Unknown]
  - Gait disturbance [Unknown]
  - Vitamin D deficiency [Unknown]
  - Large intestine benign neoplasm [Unknown]
  - Chest discomfort [Unknown]
  - Coronary artery disease [Unknown]
  - Hyponatraemia [Unknown]
  - Lymphopenia [Unknown]
  - JC polyomavirus test positive [Unknown]
  - Obesity [Unknown]
  - Chest pain [Unknown]
  - Dizziness [Unknown]
  - Leukocytosis [Unknown]
  - Prostatic specific antigen increased [Unknown]
  - Pollakiuria [Unknown]
  - Nocturia [Unknown]
  - Micturition urgency [Unknown]
  - Systemic inflammatory response syndrome [Unknown]
  - Fatigue [Unknown]
  - Prostatic specific antigen decreased [Unknown]
  - Full blood count abnormal [Unknown]
  - Metabolic function test abnormal [Unknown]
  - Muscular weakness [Unknown]
